FAERS Safety Report 4789361-1 (Version None)
Quarter: 2005Q3

REPORT INFORMATION
  Report Type: 
  Country: None (occurrence: None)
  Receive Date: 20050929
  Receipt Date: 20050602
  Transmission Date: 20060218
  Serious: No
  Sender: FDA-Public Use
  Company Number: 05P-163-0302131-00

PATIENT
  Age: 68 Year
  Sex: Female
  Weight: 72.5755 kg

DRUGS (17)
  1. HUMIRA [Suspect]
     Indication: RHEUMATOID ARTHRITIS
     Dosage: 40 MG, 1 IN 2 WK, SUBCUTANEOUS
     Route: 058
     Dates: start: 20040201
  2. RISEDONRATE SODIUM [Concomitant]
  3. PREDNISONE [Concomitant]
  4. HUMULIN 70/30 [Concomitant]
  5. ESOMEPRAZOLE [Concomitant]
  6. METHOTREXATE [Concomitant]
  7. LEUCOVORIN CALCIUM [Concomitant]
  8. FIROCETT [Concomitant]
  9. DEXTROPROPOXYPHENE HYDROCHLORIDE [Concomitant]
  10. LOSARTAN POTASSIUM [Concomitant]
  11. GAS-EX [Concomitant]
  12. FOLTEX [Concomitant]
  13. MULTI-VITAMINS [Concomitant]
  14. CALCIUM D3 ^STADA^ [Concomitant]
  15. CLOTRIMAZOLE [Concomitant]
  16. NABUMETONE [Concomitant]
  17. ALPRAZOLAM [Concomitant]

REACTIONS (6)
  - DENTAL CARIES [None]
  - DRY SKIN [None]
  - ERUCTATION [None]
  - HORDEOLUM [None]
  - UPPER RESPIRATORY TRACT INFECTION [None]
  - VULVOVAGINAL MYCOTIC INFECTION [None]
